FAERS Safety Report 18658379 (Version 1)
Quarter: 2020Q4

REPORT INFORMATION
  Report Type: Spontaneous
  Country: FR (occurrence: FR)
  Receive Date: 20201224
  Receipt Date: 20201224
  Transmission Date: 20210114
  Serious: Yes (Hospitalization)
  Sender: FDA-Public Use
  Company Number: FR-BRISTOL-MYERS SQUIBB COMPANY-BMS-2020-106798

PATIENT
  Age: 74 Year
  Sex: Female
  Weight: 38.8 kg

DRUGS (2)
  1. MICONAZOLE NITRATE. [Interacting]
     Active Substance: MICONAZOLE NITRATE
     Indication: FUNGAL SKIN INFECTION
     Route: 003
     Dates: start: 20201030, end: 20201110
  2. COUMADINE [Suspect]
     Active Substance: WARFARIN SODIUM
     Indication: THROMBOSIS PROPHYLAXIS
     Dosage: UNK
     Route: 048
     Dates: start: 2010, end: 20201110

REACTIONS (3)
  - International normalised ratio increased [Recovered/Resolved]
  - Anaemia [Recovered/Resolved]
  - Drug interaction [Recovered/Resolved]

NARRATIVE: CASE EVENT DATE: 20201030
